FAERS Safety Report 7014815-7 (Version None)
Quarter: 2010Q3

REPORT INFORMATION
  Report Type: 
  Country: None (occurrence: None)
  Receive Date: 20100927
  Receipt Date: 20100923
  Transmission Date: 20110219
  Serious: Yes (Death, Hospitalization)
  Sender: FDA-Public Use
  Company Number: TW-BAYER-201022813GPV

PATIENT
  Age: 56 Year
  Sex: Male
  Weight: 80 kg

DRUGS (10)
  1. SORAFENIB [Suspect]
     Indication: HEPATIC NEOPLASM MALIGNANT
     Dosage: TOTAL DAILY DOSE: 400 MG
     Route: 048
     Dates: start: 20100706, end: 20100727
  2. SORAFENIB [Suspect]
     Route: 048
     Dates: start: 20100825, end: 20100903
  3. SORAFENIB [Suspect]
     Dosage: TOTAL DAILY DOSE: 800 MG  UNIT DOSE: 200 MG
     Route: 048
     Dates: start: 20100323, end: 20100416
  4. MOSAPRIDE CITRATE [Concomitant]
     Dosage: TOTAL DAILY DOSE: 15 MG
     Route: 048
  5. MELOXICAM [Concomitant]
     Route: 048
  6. FAMOTIDINE [Concomitant]
     Route: 048
  7. SILYMARIN [Concomitant]
     Dosage: TOTAL DAILY DOSE: 450 MG
     Route: 048
  8. MEGESTROL [Concomitant]
     Dosage: TOTAL DAILY DOSE: 80 MG
     Route: 048
  9. DILTIAZEM [Concomitant]
     Dosage: LONG ACTING
     Route: 048
  10. ASPIRIN [Concomitant]
     Route: 048

REACTIONS (3)
  - DEATH [None]
  - HYPONATRAEMIA [None]
  - SKIN ULCER [None]
